FAERS Safety Report 10360409 (Version 1)
Quarter: 2014Q3

REPORT INFORMATION
  Report Type: Spontaneous
  Country: US (occurrence: US)
  Receive Date: 20140804
  Receipt Date: 20140804
  Transmission Date: 20150326
  Serious: Yes (Other)
  Sender: FDA-Public Use
  Company Number: US-AMGEN-USASP2014058550

PATIENT
  Age: 31 Year
  Sex: Female

DRUGS (6)
  1. ALDACTONE [Concomitant]
     Active Substance: SPIRONOLACTONE
     Dosage: 25 MG, DAILY
  2. AMLODIPINE [Concomitant]
     Active Substance: AMLODIPINE BESYLATE
     Dosage: 10 MG, DAILY
  3. RENVELA [Concomitant]
     Active Substance: SEVELAMER CARBONATE
     Dosage: 800 MG, 3 TIMES DAILY WITH MEALS
  4. LISINOPRIL. [Concomitant]
     Active Substance: LISINOPRIL
     Dosage: 40 MG, DAILY
  5. CALCITRIOL. [Concomitant]
     Active Substance: CALCITRIOL
     Dosage: 0.25 MG, DAILY
  6. EPOGEN [Suspect]
     Active Substance: ERYTHROPOIETIN
     Indication: RENAL FAILURE CHRONIC
     Dosage: UNK
     Route: 065
     Dates: start: 201403

REACTIONS (4)
  - Haematocrit abnormal [Unknown]
  - Rash [Recovered/Resolved]
  - Haemoglobin decreased [Unknown]
  - Anaemia [Not Recovered/Not Resolved]
